FAERS Safety Report 19855501 (Version 1)
Quarter: 2021Q3

REPORT INFORMATION
  Report Type: Other
  Country: CA (occurrence: CA)
  Receive Date: 20210920
  Receipt Date: 20210920
  Transmission Date: 20211014
  Serious: Yes (Hospitalization)
  Sender: FDA-Public Use
  Company Number: CA-CELLTRION INC.-2021CA012533

PATIENT

DRUGS (38)
  1. AMLODIPINE [Concomitant]
     Active Substance: AMLODIPINE BESYLATE
  2. SENNA [Concomitant]
     Active Substance: SENNA LEAF\SENNOSIDES\SENNOSIDES A AND B
  3. GABAPENTIN. [Concomitant]
     Active Substance: GABAPENTIN
  4. CALCIUM [Concomitant]
     Active Substance: CALCIUM
  5. ESCITALOPRAM [Concomitant]
     Active Substance: ESCITALOPRAM OXALATE
  6. METHYLPREDNISOLONE SODIUM SUCCINATE. [Concomitant]
     Active Substance: METHYLPREDNISOLONE SODIUM SUCCINATE
     Dosage: 100 MG
     Route: 042
  7. PREDNISONE. [Concomitant]
     Active Substance: PREDNISONE
  8. RANITIDINE. [Concomitant]
     Active Substance: RANITIDINE
  9. TAMSULOSIN [Concomitant]
     Active Substance: TAMSULOSIN
  10. ADVAIR HFA [Concomitant]
     Active Substance: FLUTICASONE PROPIONATE\SALMETEROL XINAFOATE
  11. CLONAZEPAM. [Concomitant]
     Active Substance: CLONAZEPAM
  12. PANTOPRAZOLE [Concomitant]
     Active Substance: PANTOPRAZOLE
  13. BENADRYL [Concomitant]
     Active Substance: DIPHENHYDRAMINE HYDROCHLORIDE
     Dosage: 50 MG
     Route: 048
  14. BIOTIN/FOLIC ACID/NICOTINAMIDE/PANTOTHENATE SODIUM/PYRIDOXINE HYDROCHL [Concomitant]
  15. DOMPERIDONE [Concomitant]
     Active Substance: DOMPERIDONE
  16. LANSOPRAZOLE. [Concomitant]
     Active Substance: LANSOPRAZOLE
  17. LEVOTHYROXINE. [Concomitant]
     Active Substance: LEVOTHYROXINE
  18. NITROGLYCERIN. [Concomitant]
     Active Substance: NITROGLYCERIN
     Route: 065
  19. ROSUVASTATIN. [Concomitant]
     Active Substance: ROSUVASTATIN
     Route: 058
  20. SULFAMETHOXAZOLE [Concomitant]
     Active Substance: SULFAMETHOXAZOLE
  21. ALENDRONATE SODIUM. [Concomitant]
     Active Substance: ALENDRONATE SODIUM
  22. FERROUS GLUCONATE [Concomitant]
     Active Substance: FERROUS GLUCONATE
  23. FUSIDATE SODIUM [Concomitant]
     Active Substance: FUSIDATE SODIUM
  24. HYDRALAZINE [Concomitant]
     Active Substance: HYDRALAZINE HYDROCHLORIDE
  25. IRBESARTAN. [Concomitant]
     Active Substance: IRBESARTAN
     Route: 065
  26. METOPROLOL. [Concomitant]
     Active Substance: METOPROLOL
  27. TERAZOSIN [Concomitant]
     Active Substance: TERAZOSIN HYDROCHLORIDE
  28. RITUXIMAB. [Suspect]
     Active Substance: RITUXIMAB
     Indication: CENTRAL NERVOUS SYSTEM VASCULITIS
     Dosage: 500 MG, 1 EVERY 6 MONTHS
     Route: 042
  29. ACETAMINOPHEN. [Concomitant]
     Active Substance: ACETAMINOPHEN
  30. ATIVAN [Concomitant]
     Active Substance: LORAZEPAM
  31. CANNABIS SATIVA [Concomitant]
     Active Substance: CANNABIS SATIVA FLOWERING TOP
  32. HYDROMORPHONE [Concomitant]
     Active Substance: HYDROMORPHONE
  33. SULFAMETHOXAZOLE;TRIMETHOPRIM [Concomitant]
     Active Substance: SULFAMETHOXAZOLE\TRIMETHOPRIM
  34. TYLENOL [Concomitant]
     Active Substance: ACETAMINOPHEN
     Dosage: 650 MG
     Route: 048
  35. RITUXIMAB. [Suspect]
     Active Substance: RITUXIMAB
     Indication: MICROSCOPIC POLYANGIITIS
     Dosage: UNK
     Route: 041
  36. AMITRIPTYLINE [Concomitant]
     Active Substance: AMITRIPTYLINE
  37. OLMESARTAN [Concomitant]
     Active Substance: OLMESARTAN
  38. TIOTROPIUM [Concomitant]
     Active Substance: TIOTROPIUM

REACTIONS (2)
  - Food refusal [Not Recovered/Not Resolved]
  - Delirium [Not Recovered/Not Resolved]
